FAERS Safety Report 7401196-X (Version None)
Quarter: 2011Q2

REPORT INFORMATION
  Report Type: 
  Country: None (occurrence: None)
  Receive Date: 20110407
  Receipt Date: 20110401
  Transmission Date: 20111010
  Serious: Yes (Other)
  Sender: FDA-Public Use
  Company Number: PHFR2011GB01873

PATIENT
  Sex: Male

DRUGS (2)
  1. CITALOPRAM [Concomitant]
     Dosage: 20 MG, UNK
     Route: 048
  2. CLOZARIL [Suspect]
     Indication: SCHIZOPHRENIA
     Dosage: 350 MG, QD
     Route: 048
     Dates: start: 20030320

REACTIONS (5)
  - BODY TEMPERATURE INCREASED [None]
  - HYPERHIDROSIS [None]
  - VOMITING [None]
  - NEUTROPENIA [None]
  - VIRAL UPPER RESPIRATORY TRACT INFECTION [None]
